FAERS Safety Report 22088377 (Version 1)
Quarter: 2023Q1

REPORT INFORMATION
  Report Type: Spontaneous
  Country: US (occurrence: None)
  Receive Date: 20230311
  Receipt Date: 20230311
  Transmission Date: 20230417
  Serious: Yes (Other)
  Sender: FDA-Public Use
  Company Number: None

PATIENT
  Age: 60 Year
  Sex: Female

DRUGS (2)
  1. PAXLOVID [Suspect]
     Active Substance: NIRMATRELVIR\RITONAVIR
     Indication: COVID-19
     Dates: start: 20230308
  2. NIFEDIPINE [Suspect]
     Active Substance: NIFEDIPINE

REACTIONS (3)
  - Hypotension [None]
  - Joint swelling [None]
  - Erythema [None]

NARRATIVE: CASE EVENT DATE: 20230309
